FAERS Safety Report 4796606-0 (Version None)
Quarter: 2005Q4

REPORT INFORMATION
  Report Type: 
  Country: None (occurrence: None)
  Receive Date: 20051013
  Receipt Date: 20051006
  Transmission Date: 20060501
  Serious: Yes (Other)
  Sender: FDA-Public Use
  Company Number: DE-BRISTOL-MYERS SQUIBB COMPANY-13137963

PATIENT
  Sex: Male
  Weight: 73 kg

DRUGS (14)
  1. EFAVIRENZ [Suspect]
     Indication: HIV INFECTION
     Dosage: 600 MG DAILY STARTED ON 07-FEB-2001.
     Dates: start: 20000913
  2. PRAVASIN [Suspect]
     Indication: HYPERCHOLESTEROLAEMIA
     Dates: start: 20010523
  3. COMBIVIR [Suspect]
     Indication: HIV INFECTION
     Dates: start: 20000913
  4. TRIZIVIR [Suspect]
     Indication: HIV INFECTION
     Dates: start: 20010207
  5. REYATAZ [Concomitant]
     Indication: HIV INFECTION
     Dates: start: 20040701
  6. RITONAVIR [Concomitant]
     Dosage: DOSAGE INCREASED TO 300G/D
     Dates: start: 20050808
  7. SIMVASTATIN [Concomitant]
     Indication: HYPERCHOLESTEROLAEMIA
     Dates: start: 20030708
  8. PENTAMIDINE [Concomitant]
     Indication: PROPHYLAXIS
     Route: 055
     Dates: start: 20030708
  9. CLOPIDOGREL BISULFATE [Concomitant]
     Indication: MYOCARDIAL INFARCTION
     Dates: start: 20030708
  10. RAMIPRIL [Concomitant]
     Indication: MYOCARDIAL INFARCTION
     Dates: start: 20030708
  11. L-POLAMIDON [Concomitant]
     Indication: DRUG DEPENDENCE
     Dosage: THERAPY STARTED BEFORE 13-SEP-2000;40-0-40 MG/D ON 08-JUL-2003; 50 MG/D ON 08-AUG-2005.
  12. CITALOPRAM [Concomitant]
  13. ASPIRIN [Concomitant]
  14. INEGY [Concomitant]

REACTIONS (4)
  - AFFECT LABILITY [None]
  - GENERAL PHYSICAL HEALTH DETERIORATION [None]
  - HYPERCHOLESTEROLAEMIA [None]
  - MYOCARDIAL INFARCTION [None]
